FAERS Safety Report 9775400 (Version 2)
Quarter: 2014Q1

REPORT INFORMATION
  Report Type: Spontaneous
  Country: GB (occurrence: GB)
  Receive Date: 20131220
  Receipt Date: 20140109
  Transmission Date: 20141002
  Serious: Yes (Hospitalization, Other)
  Sender: FDA-Public Use
  Company Number: GB-PFIZER INC-2013360563

PATIENT
  Age: 78 Year
  Sex: Female
  Weight: 93 kg

DRUGS (4)
  1. GENOTROPIN [Suspect]
     Indication: HYPOPITUITARISM
     Dosage: 200 MG, 1X/DAY
     Route: 058
     Dates: start: 2010
  2. THYROXINE [Concomitant]
     Indication: HYPOTHYROIDISM
     Dosage: 125 UG, UNK
     Route: 048
     Dates: start: 1994
  3. METFORMIN [Concomitant]
     Indication: DIABETES MELLITUS
     Dosage: 500 MG, UNK
     Route: 048
     Dates: start: 2011
  4. SERETIDE [Concomitant]
     Indication: ASTHMA
     Dosage: 500 UNK, UNK
     Dates: start: 2002

REACTIONS (6)
  - Syncope [Recovered/Resolved]
  - Dizziness [Recovered/Resolved]
  - Hypotension [Recovered/Resolved]
  - Diarrhoea [Recovered/Resolved]
  - Tinnitus [Recovered/Resolved]
  - Vomiting [Recovered/Resolved]
